FAERS Safety Report 21117897 (Version 3)
Quarter: 2022Q3

REPORT INFORMATION
  Report Type: Spontaneous
  Country: HU (occurrence: HU)
  Receive Date: 20220722
  Receipt Date: 20220810
  Transmission Date: 20221027
  Serious: Yes (Other)
  Sender: FDA-Public Use
  Company Number: HU-NOVARTISPH-NVSC2022HU164173

PATIENT
  Age: 30 Month
  Sex: Female
  Weight: 10.2 kg

DRUGS (3)
  1. ZOLGENSMA [Suspect]
     Active Substance: ONASEMNOGENE ABEPARVOVEC-XIOI
     Indication: Spinal muscular atrophy
     Dosage: 7X 8.3 ML, ONCE/SINGLE
     Route: 042
     Dates: start: 20220519
  2. ACETAMINOPHEN [Suspect]
     Active Substance: ACETAMINOPHEN
     Indication: Noninfective gingivitis
     Dosage: 10 MG/KG, TID, (FORMULATION: SUSPENSION)
     Route: 048
     Dates: start: 20220710, end: 20220712
  3. FAMOTIDINE [Concomitant]
     Active Substance: FAMOTIDINE
     Indication: Prophylaxis
     Dosage: 6 MG, BID (FORMULATION: SUSPENSION)
     Route: 048
     Dates: start: 20220518

REACTIONS (13)
  - Gallbladder enlargement [Unknown]
  - Blood lactate dehydrogenase increased [Recovered/Resolved]
  - Alanine aminotransferase increased [Not Recovered/Not Resolved]
  - Aspartate aminotransferase increased [Unknown]
  - Ammonia decreased [Recovered/Resolved]
  - Blood lactate dehydrogenase increased [Unknown]
  - Bilirubin conjugated increased [Not Recovered/Not Resolved]
  - Aspartate aminotransferase increased [Recovered/Resolved]
  - Alanine aminotransferase increased [Recovered/Resolved]
  - Gamma-glutamyltransferase increased [Not Recovered/Not Resolved]
  - Blood bilirubin increased [Not Recovered/Not Resolved]
  - Dental caries [Unknown]
  - Noninfective gingivitis [Unknown]

NARRATIVE: CASE EVENT DATE: 20220525
